FAERS Safety Report 9473450 (Version 1)
Quarter: 2013Q3

REPORT INFORMATION
  Report Type: Spontaneous
  Country: US (occurrence: US)
  Receive Date: 20130823
  Receipt Date: 20130823
  Transmission Date: 20140515
  Serious: No
  Sender: FDA-Public Use
  Company Number: US-BRISTOL-MYERS SQUIBB COMPANY-19001338

PATIENT
  Age: 59 Year
  Sex: Male
  Weight: 74.83 kg

DRUGS (6)
  1. SPRYCEL [Suspect]
     Indication: CHRONIC MYELOID LEUKAEMIA
     Route: 048
     Dates: start: 20121026
  2. ACYCLOVIR [Concomitant]
  3. FINASTERIDE [Concomitant]
  4. MULTIVITAMIN [Concomitant]
  5. PRILOSEC [Concomitant]
  6. TYLENOL [Concomitant]

REACTIONS (1)
  - Fatigue [Unknown]
